FAERS Safety Report 7480355 (Version 3)
Quarter: 2013Q3

REPORT INFORMATION
  Report Type: Report from Study
  Country: AU (occurrence: AU)
  Receive Date: 20100716
  Receipt Date: 20130930
  Transmission Date: 20140515
  Serious: Yes (Other)
  Sender: FDA-Public Use
  Company Number: PHHY2008AU36970

PATIENT
  Age: 38 Year
  Sex: Male
  Weight: 94 kg

DRUGS (7)
  1. CLOZARIL [Suspect]
     Indication: SCHIZOPHRENIA
     Dosage: 850 MG
     Route: 048
     Dates: start: 20040715
  2. CLOZARIL [Suspect]
     Dosage: UNK
     Dates: end: 20071022
  3. CLOZARIL [Suspect]
     Dosage: UNK
  4. CLOZARIL [Suspect]
     Dosage: 550 MG
     Dates: end: 20130918
  5. DIAZEPAM [Concomitant]
     Dosage: 5 MG, PRN
     Route: 048
     Dates: start: 20120605
  6. ESCITALOPRAM [Concomitant]
     Dosage: 20 MG, DAILY
     Route: 048
     Dates: start: 20110511
  7. AMISULPRIDE [Concomitant]
     Dosage: 200 MG, BID
     Dates: start: 20130919

REACTIONS (7)
  - Cardiac disorder [Unknown]
  - Left ventricular dysfunction [Unknown]
  - Sexual dysfunction [Unknown]
  - Libido decreased [Unknown]
  - Echocardiogram abnormal [Unknown]
  - Myocarditis [Unknown]
  - Electrocardiogram QT prolonged [Unknown]
